FAERS Safety Report 4352914-9 (Version None)
Quarter: 2004Q2

REPORT INFORMATION
  Report Type: 
  Country: None (occurrence: None)
  Receive Date: 20040430
  Receipt Date: 20040308
  Transmission Date: 20050107
  Serious: No
  Sender: FDA-Public Use
  Company Number: 205122

PATIENT
  Age: 72 Year
  Sex: Female

DRUGS (6)
  1. XOLAIR [Suspect]
     Indication: ASTHMA
     Dosage: 300 MG
     Dates: start: 20031216
  2. PREDNISONE [Concomitant]
  3. ATROVENT [Concomitant]
  4. XOPENEX [Concomitant]
  5. INTAL [Concomitant]
  6. PULMICORT [Concomitant]

REACTIONS (2)
  - ANAEMIA [None]
  - BACK PAIN [None]
